FAERS Safety Report 15419834 (Version 2)
Quarter: 2018Q4

REPORT INFORMATION
  Report Type: Not Available
  Country: US (occurrence: US)
  Receive Date: 20180924
  Receipt Date: 20181008
  Transmission Date: 20190204
  Serious: Yes (Death, Hospitalization)
  Sender: FDA-Public Use
  Company Number: US-NEUROCRINE BIOSCIENCES INC.-2018NBI02860

PATIENT
  Sex: Female

DRUGS (22)
  1. NOVOLOG MIX 70/30 FLEX PEN [Concomitant]
  2. LASIX [Concomitant]
     Active Substance: FUROSEMIDE
  3. PLAVIX [Concomitant]
     Active Substance: CLOPIDOGREL BISULFATE
  4. ULTRAM ER [Concomitant]
     Active Substance: TRAMADOL HYDROCHLORIDE
  5. TOPROL XL [Concomitant]
     Active Substance: METOPROLOL SUCCINATE
  6. VENTOLIN HFA [Concomitant]
     Active Substance: ALBUTEROL SULFATE
  7. LANTUS SOLOSTAR [Concomitant]
     Active Substance: INSULIN GLARGINE
  8. NEXIUM [Concomitant]
     Active Substance: ESOMEPRAZOLE MAGNESIUM
  9. SYMBICORT [Concomitant]
     Active Substance: BUDESONIDE\FORMOTEROL FUMARATE DIHYDRATE
  10. MULTIVITAMIN [Concomitant]
     Active Substance: VITAMINS
  11. CALCIUM+D [Concomitant]
     Active Substance: CALCIUM\VITAMIN D
  12. INGREZZA [Suspect]
     Active Substance: VALBENAZINE
     Indication: TARDIVE DYSKINESIA
     Route: 048
     Dates: start: 20170831, end: 20170907
  13. LIPITOR [Concomitant]
     Active Substance: ATORVASTATIN CALCIUM
  14. MAGNESIUM [Concomitant]
     Active Substance: MAGNESIUM
  15. INGREZZA [Suspect]
     Active Substance: VALBENAZINE
     Route: 048
     Dates: start: 20170908
  16. ATIVAN [Concomitant]
     Active Substance: LORAZEPAM
  17. ELAVIL [Concomitant]
     Active Substance: AMITRIPTYLINE HYDROCHLORIDE
  18. MELATONIN [Concomitant]
     Active Substance: MELATONIN
  19. COZAAR [Concomitant]
     Active Substance: LOSARTAN POTASSIUM
  20. PROZAC [Concomitant]
     Active Substance: FLUOXETINE HYDROCHLORIDE
  21. POTASSIUM CHLORIDE. [Concomitant]
     Active Substance: POTASSIUM CHLORIDE
  22. IRON [Concomitant]
     Active Substance: IRON

REACTIONS (2)
  - Death [Fatal]
  - Hospitalisation [Unknown]

NARRATIVE: CASE EVENT DATE: 2018
